FAERS Safety Report 8024975-7 (Version None)
Quarter: 2011Q4

REPORT INFORMATION
  Report Type: 
  Country: None (occurrence: None)
  Receive Date: 20111130
  Receipt Date: 20101008
  Transmission Date: 20120403
  Serious: Yes (Hospitalization)
  Sender: FDA-Public Use
  Company Number: 312664

PATIENT
  Age: 54 Year
  Sex: Male
  Weight: 67.6 kg

DRUGS (4)
  1. VITAMIN D NOS (VITAMIN D NOS) [Concomitant]
  2. NOVOLOG [Suspect]
     Indication: TYPE 1 DIABETES MELLITUS
     Dosage: SUBCUTAN.-PUMP
     Route: 058
     Dates: end: 20100804
  3. MULTIVITAMIN /00097801/  (ASCORBIC ACID, CALCIUM PANTOTHENATE, ERGOCAL [Concomitant]
  4. ASPIRIN [Concomitant]

REACTIONS (3)
  - NAUSEA [None]
  - BLOOD GLUCOSE INCREASED [None]
  - VOMITING [None]
